FAERS Safety Report 14138812 (Version 1)
Quarter: 2017Q4

REPORT INFORMATION
  Report Type: Spontaneous
  Country: US (occurrence: US)
  Receive Date: 20171027
  Receipt Date: 20171027
  Transmission Date: 20180321
  Serious: No
  Sender: FDA-Public Use
  Company Number: US-BAYER-2017-207294

PATIENT
  Age: 43 Year
  Sex: Female

DRUGS (1)
  1. ULTRAVIST [Suspect]
     Active Substance: IOPROMIDE
     Dosage: 30 ML, ONCE
     Route: 042
     Dates: start: 20171024, end: 20171024

REACTIONS (4)
  - Sneezing [None]
  - Swollen tongue [None]
  - Pruritus [None]
  - Ocular hyperaemia [None]

NARRATIVE: CASE EVENT DATE: 20171024
